FAERS Safety Report 5467619-0 (Version None)
Quarter: 2007Q3

REPORT INFORMATION
  Report Type: 
  Country: None (occurrence: None)
  Receive Date: 20070925
  Receipt Date: 20070921
  Transmission Date: 20080115
  Serious: Yes (Hospitalization, Disabling)
  Sender: FDA-Public Use
  Company Number: FR-MERCK-0709FRA00063

PATIENT
  Age: 52 Year
  Sex: Female

DRUGS (16)
  1. NOROXIN [Suspect]
     Indication: URINARY TRACT INFECTION
     Route: 048
     Dates: start: 20070201, end: 20070201
  2. NOROXIN [Suspect]
     Route: 048
     Dates: start: 20070101, end: 20070101
  3. NOROXIN [Suspect]
     Route: 048
     Dates: start: 20061201, end: 20061201
  4. NOROXIN [Suspect]
     Route: 048
     Dates: start: 20061101, end: 20061101
  5. NOROXIN [Suspect]
     Route: 048
     Dates: start: 20061001, end: 20061001
  6. NOROXIN [Suspect]
     Route: 048
     Dates: start: 20060901, end: 20060901
  7. NOROXIN [Suspect]
     Route: 048
     Dates: start: 20060801, end: 20060801
  8. NOROXIN [Suspect]
     Route: 048
     Dates: start: 20060701, end: 20060701
  9. NOROXIN [Suspect]
     Route: 048
     Dates: start: 20060601, end: 20060601
  10. NOROXIN [Suspect]
     Route: 048
     Dates: start: 20060501, end: 20060501
  11. NOROXIN [Suspect]
     Route: 048
     Dates: start: 20060401, end: 20060401
  12. NOROXIN [Suspect]
     Route: 048
     Dates: start: 20060301, end: 20060301
  13. NOROXIN [Suspect]
     Route: 048
     Dates: start: 20060201, end: 20060201
  14. NOROXIN [Suspect]
     Route: 048
     Dates: start: 20060101, end: 20060101
  15. NOROXIN [Suspect]
     Route: 048
     Dates: start: 20051201, end: 20051201
  16. CIPROFLOXACIN HYDROCHLORIDE [Suspect]
     Indication: PYELONEPHRITIS
     Route: 051
     Dates: start: 20070305, end: 20070325

REACTIONS (5)
  - BLOOD CREATINE PHOSPHOKINASE INCREASED [None]
  - HEPATITIS [None]
  - INJECTION SITE RASH [None]
  - MYOPATHY [None]
  - TENDON DISORDER [None]
